FAERS Safety Report 10466529 (Version 3)
Quarter: 2015Q1

REPORT INFORMATION
  Report Type: Spontaneous
  Country: US (occurrence: US)
  Receive Date: 20140922
  Receipt Date: 20150305
  Transmission Date: 20150720
  Serious: Yes (Death, Hospitalization, Other)
  Sender: FDA-Public Use
  Company Number: US-009507513-1409USA009885

PATIENT
  Sex: Male
  Weight: 90.7 kg

DRUGS (1)
  1. JANUVIA [Suspect]
     Active Substance: SITAGLIPTIN PHOSPHATE
     Indication: TYPE 2 DIABETES MELLITUS
     Dosage: 100 MG, QD
     Route: 048
     Dates: start: 20101017, end: 20121002

REACTIONS (20)
  - Hepatorenal syndrome [Unknown]
  - Diverticulitis [Not Recovered/Not Resolved]
  - Hernia repair [Unknown]
  - Cholelithiasis [Unknown]
  - Acute kidney injury [Unknown]
  - Cholelithiasis [Unknown]
  - Culture urine positive [Unknown]
  - Gastrooesophageal reflux disease [Unknown]
  - Splenomegaly [Unknown]
  - Metastases to liver [Unknown]
  - Vertebral wedging [Unknown]
  - Hepatic failure [Unknown]
  - Pulmonary mass [Unknown]
  - Hypovolaemia [Unknown]
  - Pancreatic carcinoma [Fatal]
  - Oedema peripheral [Unknown]
  - Hyponatraemia [Unknown]
  - Biliary sphincterotomy [Unknown]
  - Prostatomegaly [Unknown]
  - Bile duct stenosis [Unknown]

NARRATIVE: CASE EVENT DATE: 20121023
